FAERS Safety Report 5299128-6 (Version None)
Quarter: 2007Q2

REPORT INFORMATION
  Report Type: 
  Country: None (occurrence: None)
  Receive Date: 20070417
  Receipt Date: 20070411
  Transmission Date: 20071010
  Serious: Yes (Other)
  Sender: FDA-Public Use
  Company Number: US-BAYER-200616314BWH

PATIENT
  Age: 80 Year
  Sex: Female
  Weight: 83 kg

DRUGS (7)
  1. NEXAVAR [Suspect]
     Indication: METASTASES TO LUNG
     Dosage: TOTAL DAILY DOSE: 800 MG  UNIT DOSE: 200 MG
     Route: 048
     Dates: start: 20061001
  2. GLIPIZIDE [Concomitant]
     Indication: DIABETES MELLITUS
  3. ACTOS [Concomitant]
     Indication: DIABETES MELLITUS
  4. TRICOR [Concomitant]
  5. BENICAR [Concomitant]
  6. NORVASC [Concomitant]
  7. METRONIDAZOLE CREAM [Concomitant]

REACTIONS (3)
  - ARTHRALGIA [None]
  - BLOOD GLUCOSE INCREASED [None]
  - DIARRHOEA [None]
